FAERS Safety Report 22642521 (Version 1)
Quarter: 2023Q2

REPORT INFORMATION
  Report Type: Spontaneous
  Country: BR (occurrence: BR)
  Receive Date: 20230626
  Receipt Date: 20230626
  Transmission Date: 20230722
  Serious: Yes (Death, Other)
  Sender: FDA-Public Use
  Company Number: BR-STRIDES ARCOLAB LIMITED-2023SP009963

PATIENT
  Age: 19 Year
  Sex: Female

DRUGS (12)
  1. CISPLATIN [Suspect]
     Active Substance: CISPLATIN
     Indication: Small cell carcinoma
     Dosage: 80 MILLIGRAM/SQ. METER, CYCLICAL, EVERY 3 WEEKS, DAY 1
     Route: 065
     Dates: start: 202005, end: 2020
  2. CISPLATIN [Suspect]
     Active Substance: CISPLATIN
     Indication: Ovarian cancer
  3. DOXORUBICIN [Suspect]
     Active Substance: DOXORUBICIN
     Indication: Small cell carcinoma
     Dosage: 40 MILLIGRAM/SQ. METER, CYCLICAL, EVERY 3 WEEKS, DAY 1
     Route: 065
     Dates: start: 202005, end: 2020
  4. DOXORUBICIN [Suspect]
     Active Substance: DOXORUBICIN
     Indication: Ovarian cancer
  5. ETOPOSIDE [Suspect]
     Active Substance: ETOPOSIDE
     Indication: Small cell carcinoma
     Dosage: 75 MILLIGRAM/SQ. METER, CYCLICAL, EVERY 3 WEEKS, DAYS 1-3
     Route: 065
     Dates: start: 202005, end: 2020
  6. ETOPOSIDE [Suspect]
     Active Substance: ETOPOSIDE
     Indication: Ovarian cancer
  7. CARBOPLATIN [Suspect]
     Active Substance: CARBOPLATIN
     Indication: Small cell carcinoma
     Dosage: UNK
     Route: 065
     Dates: start: 202011
  8. CARBOPLATIN [Suspect]
     Active Substance: CARBOPLATIN
     Indication: Ovarian cancer
  9. CYCLOPHOSPHAMIDE [Suspect]
     Active Substance: CYCLOPHOSPHAMIDE
     Indication: Small cell carcinoma
     Dosage: 300 MILLIGRAM/SQ. METER, CYCLICAL, EVERY 3 WEEKS, DAYS 1-3
     Route: 065
     Dates: start: 202005, end: 2020
  10. CYCLOPHOSPHAMIDE [Suspect]
     Active Substance: CYCLOPHOSPHAMIDE
     Indication: Ovarian cancer
  11. PACLITAXEL [Suspect]
     Active Substance: PACLITAXEL
     Indication: Small cell carcinoma
     Dosage: UNK
     Route: 065
     Dates: start: 202011
  12. PACLITAXEL [Suspect]
     Active Substance: PACLITAXEL
     Indication: Ovarian cancer

REACTIONS (7)
  - Death [Fatal]
  - Febrile neutropenia [Unknown]
  - Myelosuppression [Unknown]
  - Malignant neoplasm progression [Unknown]
  - Drug ineffective [Unknown]
  - Therapy partial responder [Unknown]
  - Off label use [Unknown]

NARRATIVE: CASE EVENT DATE: 20200101
